FAERS Safety Report 9871219 (Version 2)
Quarter: 2014Q1

REPORT INFORMATION
  Report Type: Report from Study
  Country: US (occurrence: US)
  Receive Date: 20140205
  Receipt Date: 20140205
  Transmission Date: 20141002
  Serious: Yes (Hospitalization)
  Sender: FDA-Public Use
  Company Number: US-ELI_LILLY_AND_COMPANY-US201308009412

PATIENT
  Age: 65 Year
  Sex: Female
  Weight: 85.26 kg

DRUGS (56)
  1. OLANZAPINE LONG-ACTING IM [Suspect]
     Indication: SCHIZOPHRENIA
     Dosage: 300 MG, UNK
     Route: 030
     Dates: start: 20111007
  2. OLANZAPINE LONG-ACTING IM [Suspect]
     Dosage: 300 MG, UNK
     Route: 030
     Dates: start: 20111021
  3. OLANZAPINE LONG-ACTING IM [Suspect]
     Dosage: 300 MG, UNK
     Route: 030
     Dates: start: 20111104
  4. OLANZAPINE LONG-ACTING IM [Suspect]
     Dosage: 300 MG, UNK
     Route: 030
     Dates: start: 20111118
  5. OLANZAPINE LONG-ACTING IM [Suspect]
     Dosage: 300 MG, UNK
     Route: 030
     Dates: start: 20111202
  6. OLANZAPINE LONG-ACTING IM [Suspect]
     Dosage: 300 MG, UNK
     Route: 030
     Dates: start: 20111216
  7. OLANZAPINE LONG-ACTING IM [Suspect]
     Dosage: 300 MG, UNK
     Route: 030
     Dates: start: 20111230
  8. OLANZAPINE LONG-ACTING IM [Suspect]
     Dosage: 300 MG, UNK
     Route: 030
     Dates: start: 20120113
  9. OLANZAPINE LONG-ACTING IM [Suspect]
     Dosage: 300 MG, UNK
     Route: 030
     Dates: start: 20120127
  10. OLANZAPINE LONG-ACTING IM [Suspect]
     Dosage: 300 MG, UNK
     Route: 030
     Dates: start: 20120210
  11. OLANZAPINE LONG-ACTING IM [Suspect]
     Dosage: 300 MG, UNK
     Route: 030
     Dates: start: 20120224
  12. OLANZAPINE LONG-ACTING IM [Suspect]
     Dosage: 300 MG, UNK
     Route: 030
     Dates: start: 20120309
  13. OLANZAPINE LONG-ACTING IM [Suspect]
     Dosage: 300 MG, UNK
     Route: 030
     Dates: start: 20120323
  14. OLANZAPINE LONG-ACTING IM [Suspect]
     Dosage: 300 MG, UNK
     Route: 030
     Dates: start: 20120406
  15. OLANZAPINE LONG-ACTING IM [Suspect]
     Dosage: 300 MG, UNK
     Route: 030
     Dates: start: 20120420
  16. OLANZAPINE LONG-ACTING IM [Suspect]
     Dosage: 300 MG, UNK
     Route: 030
     Dates: start: 20120504
  17. OLANZAPINE LONG-ACTING IM [Suspect]
     Dosage: 300 MG, UNK
     Route: 030
     Dates: start: 20120518
  18. OLANZAPINE LONG-ACTING IM [Suspect]
     Dosage: 300 MG, UNK
     Route: 030
     Dates: start: 20120601
  19. OLANZAPINE LONG-ACTING IM [Suspect]
     Dosage: 300 MG, UNK
     Route: 030
     Dates: start: 20120615
  20. OLANZAPINE LONG-ACTING IM [Suspect]
     Dosage: 300 MG, UNK
     Route: 030
     Dates: start: 20120629
  21. OLANZAPINE LONG-ACTING IM [Suspect]
     Dosage: 300 MG, UNK
     Route: 030
     Dates: start: 20120713
  22. OLANZAPINE LONG-ACTING IM [Suspect]
     Dosage: 300 MG, UNK
     Route: 030
     Dates: start: 20120727
  23. OLANZAPINE LONG-ACTING IM [Suspect]
     Dosage: 300 MG, UNK
     Route: 030
     Dates: start: 20120810
  24. OLANZAPINE LONG-ACTING IM [Suspect]
     Dosage: 300 MG, UNK
     Route: 030
     Dates: start: 20120824
  25. OLANZAPINE LONG-ACTING IM [Suspect]
     Dosage: 300 MG, UNK
     Route: 030
     Dates: start: 20120907
  26. OLANZAPINE LONG-ACTING IM [Suspect]
     Dosage: 300 MG, UNK
     Route: 030
     Dates: start: 20120921
  27. OLANZAPINE LONG-ACTING IM [Suspect]
     Dosage: 300 MG, UNK
     Route: 030
     Dates: start: 20121005
  28. OLANZAPINE LONG-ACTING IM [Suspect]
     Dosage: 300 MG, UNK
     Route: 030
     Dates: start: 20121019
  29. OLANZAPINE LONG-ACTING IM [Suspect]
     Dosage: 300 MG, UNK
     Route: 030
     Dates: start: 20121102
  30. OLANZAPINE LONG-ACTING IM [Suspect]
     Dosage: 300 MG, UNK
     Route: 030
     Dates: start: 20121116
  31. OLANZAPINE LONG-ACTING IM [Suspect]
     Dosage: 300 MG, UNK
     Route: 030
     Dates: start: 20121130
  32. OLANZAPINE LONG-ACTING IM [Suspect]
     Dosage: 300 MG, UNK
     Route: 030
     Dates: start: 20121214
  33. OLANZAPINE LONG-ACTING IM [Suspect]
     Dosage: 300 MG, UNK
     Route: 030
     Dates: start: 20121228
  34. OLANZAPINE LONG-ACTING IM [Suspect]
     Dosage: 300 MG, UNK
     Route: 030
     Dates: start: 20130111
  35. OLANZAPINE LONG-ACTING IM [Suspect]
     Dosage: 300 MG, UNK
     Route: 030
     Dates: start: 20130125
  36. OLANZAPINE LONG-ACTING IM [Suspect]
     Dosage: 300 MG, UNK
     Route: 030
     Dates: start: 20130208
  37. OLANZAPINE LONG-ACTING IM [Suspect]
     Dosage: 300 MG, UNK
     Route: 030
     Dates: start: 20130222
  38. OLANZAPINE LONG-ACTING IM [Suspect]
     Dosage: 300 MG, UNK
     Route: 030
     Dates: start: 20130308
  39. OLANZAPINE LONG-ACTING IM [Suspect]
     Dosage: 300 MG, UNK
     Route: 030
     Dates: start: 20130322
  40. OLANZAPINE LONG-ACTING IM [Suspect]
     Dosage: 300 MG, UNK
     Route: 030
     Dates: start: 20130405
  41. OLANZAPINE LONG-ACTING IM [Suspect]
     Dosage: 300 MG, UNK
     Route: 030
     Dates: start: 20130419
  42. OLANZAPINE LONG-ACTING IM [Suspect]
     Dosage: 300 MG, UNK
     Route: 030
     Dates: start: 20130503
  43. OLANZAPINE LONG-ACTING IM [Suspect]
     Dosage: 300 MG, UNK
     Route: 030
     Dates: start: 20130517
  44. OLANZAPINE LONG-ACTING IM [Suspect]
     Dosage: 300 MG, UNK
     Route: 030
     Dates: start: 20130531
  45. OLANZAPINE LONG-ACTING IM [Suspect]
     Dosage: 300 MG, UNK
     Route: 030
     Dates: start: 20130614
  46. OLANZAPINE LONG-ACTING IM [Suspect]
     Dosage: 300 MG, UNK
     Route: 030
     Dates: start: 20130628
  47. OLANZAPINE LONG-ACTING IM [Suspect]
     Dosage: 300 MG, UNK
     Route: 030
     Dates: start: 20130712
  48. OLANZAPINE LONG-ACTING IM [Suspect]
     Dosage: 300 MG, UNK
     Route: 030
     Dates: start: 20130726
  49. OLANZAPINE LONG-ACTING IM [Suspect]
     Dosage: 300 MG, UNK
     Route: 030
     Dates: start: 20130823, end: 20130823
  50. DETROL LA [Concomitant]
     Indication: HYPERTONIC BLADDER
     Dosage: 4 MG, QD
     Route: 048
  51. ATENOLOL [Concomitant]
     Indication: HYPERTENSION
     Dosage: 25 MG, QD
     Route: 048
  52. MIRAPEX [Concomitant]
     Indication: TREMOR
     Dosage: 0.25 MG, TID
     Route: 048
  53. SIMVASTATIN [Concomitant]
     Indication: HYPERLIPIDAEMIA
     Dosage: 40 MG, EACH EVENING
     Route: 048
  54. FAMOTIDINE [Concomitant]
     Indication: GASTROOESOPHAGEAL REFLUX DISEASE
     Dosage: 20 MG, BID
     Route: 048
  55. DEPAKOTE [Concomitant]
     Indication: SCHIZOAFFECTIVE DISORDER
     Dosage: 500 MG, BID
     Route: 048
  56. ZOLOFT [Concomitant]
     Dosage: 100 MG, QD
     Route: 048

REACTIONS (6)
  - Agitation [Unknown]
  - Anxiety [Unknown]
  - Hypertension [Unknown]
  - Extrapyramidal disorder [Unknown]
  - Dyskinesia [Unknown]
  - Hypotension [Unknown]
